FAERS Safety Report 16960179 (Version 2)
Quarter: 2020Q4

REPORT INFORMATION
  Report Type: Spontaneous
  Country: CN (occurrence: CN)
  Receive Date: 20191025
  Receipt Date: 20201023
  Transmission Date: 20210113
  Serious: Yes (Other)
  Sender: FDA-Public Use
  Company Number: CN-SUN PHARMACEUTICAL INDUSTRIES LTD-2019R1-224954

PATIENT
  Age: 32 Year
  Sex: Female

DRUGS (6)
  1. FLUOROURACIL. [Suspect]
     Active Substance: FLUOROURACIL
     Indication: GLUCOSE-6-PHOSPHATE DEHYDROGENASE DEFICIENCY
  2. CETUXIMAB. [Suspect]
     Active Substance: CETUXIMAB
     Indication: GLUCOSE-6-PHOSPHATE DEHYDROGENASE DEFICIENCY
  3. FLUOROURACIL. [Suspect]
     Active Substance: FLUOROURACIL
     Indication: NASOPHARYNGEAL CANCER
     Dosage: 600 MILLIGRAM/SQ. METER EVERY 3 WEEKS FOR THREE CYCLES
     Route: 065
  4. CETUXIMAB. [Suspect]
     Active Substance: CETUXIMAB
     Indication: NASOPHARYNGEAL CANCER
     Dosage: ON DAYS 1, 8 AND 15 (LOADING DOSE OF 400 MG/M2 ON DAY 1 THEN 250 MG/M2 WEEKLY
     Route: 042
  5. DOCETAXEL. [Suspect]
     Active Substance: DOCETAXEL
     Indication: NASOPHARYNGEAL CANCER
     Dosage: 60 MILLIGRAM/SQ. METER ON DAY 2 EVERY 3 WEEKS FOR THREE CYCLES
     Route: 065
  6. DOCETAXEL. [Suspect]
     Active Substance: DOCETAXEL
     Indication: GLUCOSE-6-PHOSPHATE DEHYDROGENASE DEFICIENCY

REACTIONS (3)
  - Diarrhoea [Unknown]
  - Acne [Unknown]
  - Neutropenia [Unknown]
